FAERS Safety Report 15004203 (Version 2)
Quarter: 2021Q3

REPORT INFORMATION
  Report Type: Other
  Country: GR (occurrence: GR)
  Receive Date: 20180613
  Receipt Date: 20210712
  Transmission Date: 20211014
  Serious: Yes (Death, Other)
  Sender: FDA-Public Use
  Company Number: GR-ROCHE-2138026

PATIENT
  Age: 60 Year
  Sex: Male

DRUGS (2)
  1. PLACEBO [Suspect]
     Active Substance: UNSPECIFIED INGREDIENT
     Indication: WALDENSTROM^S MACROGLOBULINAEMIA
     Route: 048
  2. RITUXIMAB. [Suspect]
     Active Substance: RITUXIMAB
     Indication: WALDENSTROM^S MACROGLOBULINAEMIA
     Dosage: 375 MG PER SQUARE METER OF BODY?SURFACE AREA, WITH INFUSIONS AT WEEKS 1 TO 4 AND 17 TO 20
     Route: 042

REACTIONS (3)
  - Immune thrombocytopenia [Not Recovered/Not Resolved]
  - Haemorrhage intracranial [Fatal]
  - Gastrointestinal haemorrhage [Recovered/Resolved]
